FAERS Safety Report 17432419 (Version 2)
Quarter: 2020Q1

REPORT INFORMATION
  Report Type: Spontaneous
  Country: IT (occurrence: IT)
  Receive Date: 20200218
  Receipt Date: 20200220
  Transmission Date: 20200409
  Serious: Yes (Hospitalization, Other)
  Sender: FDA-Public Use
  Company Number: IT-ARRAY-2020-07379

PATIENT

DRUGS (10)
  1. CLEXANE [Concomitant]
     Active Substance: ENOXAPARIN SODIUM
     Indication: PRODUCT USED FOR UNKNOWN INDICATION
     Dosage: 4000 IU, AT 8:00 H
     Route: 058
  2. MEKTOVI [Suspect]
     Active Substance: BINIMETINIB
     Indication: COLON CANCER METASTATIC
     Dosage: 90 MG, QD (1/DAY)
     Route: 048
     Dates: start: 20191217, end: 20200117
  3. CLEXANE [Concomitant]
     Active Substance: ENOXAPARIN SODIUM
     Dosage: 6000 IU, AT 20:00 H
     Route: 058
  4. TRIATEC [RAMIPRIL] [Concomitant]
     Active Substance: RAMIPRIL
     Indication: PRODUCT USED FOR UNKNOWN INDICATION
     Dosage: 1 DF, QD (1/DAY)
     Route: 048
  5. DELTACORTENE [Concomitant]
     Active Substance: PREDNISONE
     Indication: PRODUCT USED FOR UNKNOWN INDICATION
     Dosage: 0.5 DF, QD (1/DAY)
     Route: 048
  6. CETUXIMAB. [Concomitant]
     Active Substance: CETUXIMAB
     Indication: COLON CANCER METASTATIC
     Dosage: UNK
     Dates: start: 20191217
  7. PANTORC [Concomitant]
     Active Substance: PANTOPRAZOLE SODIUM
     Indication: PRODUCT USED FOR UNKNOWN INDICATION
     Dosage: 1 DF, QD (1/DAY)
     Route: 048
  8. BRAFTOVI [Suspect]
     Active Substance: ENCORAFENIB
     Indication: COLON CANCER METASTATIC
     Dosage: 300 MG, QD (1/DAY)
     Route: 048
     Dates: start: 20191217, end: 20200117
  9. LANOXIN [Concomitant]
     Active Substance: DIGOXIN
     Indication: PRODUCT USED FOR UNKNOWN INDICATION
     Dosage: 1 DF, QD (1/DAY)
     Route: 048
  10. OXYCONTIN [Concomitant]
     Active Substance: OXYCODONE HYDROCHLORIDE
     Indication: PRODUCT USED FOR UNKNOWN INDICATION
     Dosage: 1 DF, BID (2/DAY)
     Route: 065

REACTIONS (7)
  - Anaemia [Not Recovered/Not Resolved]
  - Rectal haemorrhage [Recovered/Resolved]
  - Presyncope [Recovered/Resolved]
  - Abdominal pain [Recovered/Resolved]
  - Product use in unapproved indication [Unknown]
  - Acute myocardial infarction [Recovered/Resolved]
  - Large intestinal ulcer [Unknown]

NARRATIVE: CASE EVENT DATE: 20191217
